FAERS Safety Report 6506523-3 (Version None)
Quarter: 2009Q4

REPORT INFORMATION
  Report Type: 
  Country: None (occurrence: None)
  Receive Date: 20091216
  Receipt Date: 20091201
  Transmission Date: 20100525
  Serious: Yes (Hospitalization, Other)
  Sender: FDA-Public Use
  Company Number: 002782

PATIENT
  Age: 79 Year
  Sex: Male

DRUGS (2)
  1. PREDNISOLONE [Suspect]
     Indication: HENOCH-SCHONLEIN PURPURA
     Dosage: 30 MG ORAL), (20 MG ORAL), (30 MG ORAL)
     Route: 048
  2. CYCLOPHOSPHAMIDE [Concomitant]

REACTIONS (3)
  - HAEMATURIA [None]
  - PROTEINURIA [None]
  - RENAL IMPAIRMENT [None]
